FAERS Safety Report 11068592 (Version 1)
Quarter: 2015Q2

REPORT INFORMATION
  Report Type: Spontaneous
  Country: US (occurrence: US)
  Receive Date: 20150427
  Receipt Date: 20150427
  Transmission Date: 20150821
  Serious: No
  Sender: FDA-Public Use
  Company Number: US-PFIZER INC-2015139286

PATIENT
  Age: 55 Year
  Sex: Female
  Weight: 122 kg

DRUGS (2)
  1. LYRICA [Suspect]
     Active Substance: PREGABALIN
     Indication: NERVE COMPRESSION
     Dosage: 75 MG, 2X/DAY
     Dates: start: 201502
  2. LYRICA [Suspect]
     Active Substance: PREGABALIN
     Dosage: UNK (DECREASED DOSE)

REACTIONS (1)
  - Somnolence [Recovering/Resolving]
